FAERS Safety Report 14068460 (Version 1)
Quarter: 2017Q4

REPORT INFORMATION
  Report Type: Spontaneous
  Country: PL (occurrence: PL)
  Receive Date: 20171010
  Receipt Date: 20171010
  Transmission Date: 20180321
  Serious: Yes (Other)
  Sender: FDA-Public Use
  Company Number: PHHY2017PL146958

PATIENT
  Age: 28 Year
  Sex: Male

DRUGS (5)
  1. CARBAMAZEPINE. [Suspect]
     Active Substance: CARBAMAZEPINE
     Indication: EPILEPSY
     Dosage: 600 MG, QD
     Route: 065
  2. OXCARBAZEPINE. [Suspect]
     Active Substance: OXCARBAZEPINE
     Dosage: 900 MG.QD
     Route: 065
  3. CARBAMAZEPINE. [Suspect]
     Active Substance: CARBAMAZEPINE
     Indication: AUTOMATISM EPILEPTIC
  4. OXCARBAZEPINE. [Suspect]
     Active Substance: OXCARBAZEPINE
     Indication: EPILEPSY
     Dosage: 900 MG, QD
     Route: 065
     Dates: start: 2005
  5. OXCARBAZEPINE. [Suspect]
     Active Substance: OXCARBAZEPINE
     Indication: AUTOMATISM EPILEPTIC
     Dosage: 1650 MG, QD
     Route: 065

REACTIONS (3)
  - Neurotoxicity [Unknown]
  - Epilepsy [Unknown]
  - Generalised tonic-clonic seizure [Unknown]

NARRATIVE: CASE EVENT DATE: 200805
